FAERS Safety Report 8621489-8 (Version None)
Quarter: 2012Q3

REPORT INFORMATION
  Report Type: 
  Country: None (occurrence: None)
  Receive Date: 20120824
  Receipt Date: 20120815
  Transmission Date: 20120928
  Serious: No
  Sender: FDA-Public Use
  Company Number: US-ASTRAZENECA-2012SE57896

PATIENT
  Age: 62 Year
  Sex: Female

DRUGS (1)
  1. ATACAND [Suspect]
     Route: 048

REACTIONS (2)
  - MEMORY IMPAIRMENT [None]
  - THINKING ABNORMAL [None]
